FAERS Safety Report 5354881-8 (Version None)
Quarter: 2007Q2

REPORT INFORMATION
  Report Type: 
  Country: None (occurrence: None)
  Receive Date: 20070611
  Receipt Date: 20070531
  Transmission Date: 20071010
  Serious: Yes (Hospitalization, Other)
  Sender: FDA-Public Use
  Company Number: 2007US001312

PATIENT
  Age: 17 Year
  Sex: Male

DRUGS (3)
  1. PROGRAF [Suspect]
     Indication: KIDNEY TRANSPLANT REJECTION
  2. MYCOPHENOLATE MOFETIL [Concomitant]
  3. PREDNISONE TAB [Concomitant]

REACTIONS (6)
  - BK VIRUS INFECTION [None]
  - BLADDER DISTENSION [None]
  - KIDNEY TRANSPLANT REJECTION [None]
  - NEPHROTIC SYNDROME [None]
  - TUBULOINTERSTITIAL NEPHRITIS [None]
  - URETHRAL STENOSIS [None]
